FAERS Safety Report 6305307-9 (Version None)
Quarter: 2009Q3

REPORT INFORMATION
  Report Type: 
  Country: None (occurrence: None)
  Receive Date: 20090807
  Receipt Date: 20090724
  Transmission Date: 20100115
  Serious: Yes (Hospitalization)
  Sender: FDA-Public Use
  Company Number: DSM-2009-01036

PATIENT
  Age: 82 Year
  Sex: Female
  Weight: 65 kg

DRUGS (7)
  1. OLMESARTAN MEDOXOMIL [Suspect]
     Indication: DRUG USE FOR UNKNOWN INDICATION
     Dosage: 100 MG (100 MG,1 IN 1 D),ORAL
     Route: 048
     Dates: start: 20090713, end: 20090713
  2. METOPROLOL SUCCINATE [Suspect]
     Indication: DRUG USE FOR UNKNOWN INDICATION
     Dosage: 500 MG (500 MG,1 IN 1 D),ORAL
     Route: 048
     Dates: start: 20090713, end: 20090713
  3. SOLVEX (BENZOIC ACID, SALICYLIC ACID, CHLOROTHYMOL, THYMOL) (4 MILLIGR [Suspect]
     Indication: DRUG USE FOR UNKNOWN INDICATION
     Dosage: 20 MG (20 MG,1 IN 1 D),ORAL
     Route: 048
     Dates: start: 20090713, end: 20090713
  4. CORVO HCT (ENAPRIL MALEATE/HYDROCHLOROTHIAZIDE) (TABLET) [Suspect]
     Indication: DRUG USE FOR UNKNOWN INDICATION
     Dosage: 5 X 10/25 MG (1 IN 1 D),ORAL
     Route: 048
     Dates: start: 20090713, end: 20090713
  5. ISOSORBIDE MONONITRATE [Suspect]
     Indication: DRUG USE FOR UNKNOWN INDICATION
     Dosage: 5 TABLETS (1 IN 1 D),ORAL
     Route: 048
     Dates: start: 20090713, end: 20090713
  6. MOLSIDOMIN (MOLSIDOMINE) (8 MILLIGRAM, TABLET) (MOLSIDOMINE) [Suspect]
     Indication: DRUG USE FOR UNKNOWN INDICATION
     Dosage: 40 MG (40 MG,1 IN 1 D),ORAL
     Route: 048
     Dates: start: 20090713, end: 20090713
  7. TEBONIN FORTE (GINKGO BILOBA EXTRACT) (40 MILLIGRAM, TABLET) (GINKGO B [Suspect]
     Indication: DRUG USE FOR UNKNOWN INDICATION
     Dosage: 600 MG (600 MG,1 IN 1 D),ORAL
     Route: 048
     Dates: start: 20090713, end: 20090713

REACTIONS (3)
  - ATRIOVENTRICULAR BLOCK FIRST DEGREE [None]
  - INTENTIONAL OVERDOSE [None]
  - SUICIDE ATTEMPT [None]
